FAERS Safety Report 20205760 (Version 1)
Quarter: 2021Q4

REPORT INFORMATION
  Report Type: Spontaneous
  Country: TR (occurrence: TR)
  Receive Date: 20211220
  Receipt Date: 20211220
  Transmission Date: 20220303
  Serious: Yes (Other)
  Sender: FDA-Public Use
  Company Number: TR-AMGEN-TURSP2021199435

PATIENT

DRUGS (4)
  1. FILGRASTIM [Suspect]
     Active Substance: FILGRASTIM
     Indication: Haematopoietic stem cell mobilisation
     Dosage: 10 MICROGRAM/KILOGRAM, QD (UNTIL THE STEM CELL HARVEST)
     Route: 058
  2. FILGRASTIM [Suspect]
     Active Substance: FILGRASTIM
     Dosage: 5 MICROGRAM/KILOGRAM (FROM FIRST DAY AFTER ASCT)
     Route: 058
  3. CYCLOPHOSPHAMIDE [Concomitant]
     Active Substance: CYCLOPHOSPHAMIDE
     Indication: Plasma cell myeloma
     Dosage: 4 GRAM PER SQUARE METRE, (FOR FOUR DAY)
     Route: 065
  4. MESNA [Concomitant]
     Active Substance: MESNA
     Indication: Plasma cell myeloma
     Dosage: 4 GRAM PER SQUARE METRE
     Route: 065

REACTIONS (6)
  - Engraftment syndrome [Unknown]
  - Febrile neutropenia [Unknown]
  - Hepatotoxicity [Unknown]
  - Cardiotoxicity [Unknown]
  - Nephropathy toxic [Unknown]
  - Infection [Unknown]
